FAERS Safety Report 5281322-1 (Version None)
Quarter: 2007Q1

REPORT INFORMATION
  Report Type: 
  Country: None (occurrence: None)
  Receive Date: 20061221
  Receipt Date: 20050715
  Transmission Date: 20070707
  Serious: No
  Sender: FDA-Public Use
  Company Number: 2005UW10602

PATIENT
  Age: 57 Year
  Sex: Female

DRUGS (1)
  1. EMLA [Suspect]
     Indication: BLOOD ELECTROLYTES
     Dosage: EVERY OTHER WEEK, SOMETIMES EVERY TWO TO THREE WEEKS
     Dates: start: 20011026

REACTIONS (1)
  - CONVULSION [None]
